FAERS Safety Report 22104818 (Version 2)
Quarter: 2023Q1

REPORT INFORMATION
  Report Type: Spontaneous
  Country: DE (occurrence: DE)
  Receive Date: 20230316
  Receipt Date: 20230328
  Transmission Date: 20230418
  Serious: Yes (Death, Life-Threatening, Other)
  Sender: FDA-Public Use
  Company Number: DE-TEVA-2023-DE-2866002

PATIENT
  Age: 64 Year
  Sex: Male

DRUGS (6)
  1. GEMCITABINE [Suspect]
     Active Substance: GEMCITABINE
     Indication: Pancreatic carcinoma
     Dosage: FOR 4 CYCLES WITH PACLITAXEL, AND ONE CYCLE AS MONOTHERAPY
     Route: 065
  2. FLUOROURACIL [Suspect]
     Active Substance: FLUOROURACIL
     Indication: Pancreatic carcinoma
     Dosage: AS PART OF THE MODIFIED FOLFIRINOX REGIMEN, FOR 2 CYCLES
     Route: 065
  3. PACLITAXEL [Suspect]
     Active Substance: PACLITAXEL
     Indication: Pancreatic carcinoma
     Dosage: FOR 4 CYCLES WITH GEMCITABINE
     Route: 065
  4. LEUCOVORIN [Concomitant]
     Active Substance: LEUCOVORIN
     Indication: Pancreatic carcinoma
     Dosage: AS PART OF THE MODIFIED FOLFIRINOX REGIMEN, FOR 2 CYCLES
     Route: 065
  5. IRINOTECAN [Concomitant]
     Active Substance: IRINOTECAN
     Indication: Pancreatic carcinoma
     Dosage: AS PART OF THE MODIFIED FOLFIRINOX REGIMEN, FOR 2 CYCLES
     Route: 065
  6. OXALIPLATIN [Concomitant]
     Active Substance: OXALIPLATIN
     Indication: Pancreatic carcinoma
     Dosage: AS PART OF THE MODIFIED FOLFIRINOX REGIMEN, FOR 2 CYCLES
     Route: 065

REACTIONS (2)
  - Drug ineffective [Fatal]
  - Arteriospasm coronary [Unknown]
